FAERS Safety Report 5012421-7 (Version None)
Quarter: 2006Q2

REPORT INFORMATION
  Report Type: 
  Country: None (occurrence: None)
  Receive Date: 20060411
  Receipt Date: 20051212
  Transmission Date: 20061013
  Serious: No
  Sender: FDA-Public Use
  Company Number: 2005S1000272

PATIENT
  Age: 41 Year
  Sex: Male

DRUGS (4)
  1. CUBICIN [Suspect]
     Indication: OSTEOMYELITIS
     Dosage: 350 MG;Q24H;IV
     Route: 042
     Dates: start: 20051201
  2. IMIPRAMINE [Concomitant]
  3. METRONIDAZOLE [Concomitant]
  4. VANCOMYCIN [Concomitant]

REACTIONS (1)
  - ARRHYTHMIA [None]
